FAERS Safety Report 4343063-4 (Version None)
Quarter: 2004Q2

REPORT INFORMATION
  Report Type: 
  Country: None (occurrence: None)
  Receive Date: 20040421
  Receipt Date: 20040412
  Transmission Date: 20050107
  Serious: Yes (Death, Other)
  Sender: FDA-Public Use
  Company Number: US-BRISTOL-MYERS SQUIBB COMPANY-12563599

PATIENT
  Age: 64 Year
  Sex: Male

DRUGS (5)
  1. CISPLATIN [Suspect]
     Indication: CHRONIC LYMPHOCYTIC LEUKAEMIA
  2. VP-16 [Suspect]
     Indication: CHRONIC LYMPHOCYTIC LEUKAEMIA
  3. CYTARABINE [Suspect]
     Indication: CHRONIC LYMPHOCYTIC LEUKAEMIA
  4. DEXTROSE 5% 1/2 NORMAL SALINE [Concomitant]
     Indication: FLUID REPLACEMENT
  5. ALLOPURINOL [Concomitant]
     Route: 048

REACTIONS (3)
  - INFECTION [None]
  - PANCYTOPENIA [None]
  - TUMOUR LYSIS SYNDROME [None]
